FAERS Safety Report 21037836 (Version 1)
Quarter: 2022Q3

REPORT INFORMATION
  Report Type: Spontaneous
  Country: US (occurrence: US)
  Receive Date: 20220704
  Receipt Date: 20220704
  Transmission Date: 20221027
  Serious: No
  Sender: FDA-Public Use
  Company Number: US-NOVARTISTESTPH-NVSC2022US151344

PATIENT
  Sex: Female

DRUGS (1)
  1. LEQVIO [Suspect]
     Active Substance: INCLISIRAN SODIUM
     Indication: Arteriosclerosis
     Dosage: ONE SINGLE DOSE
     Route: 058
     Dates: start: 20220630, end: 20220630

REACTIONS (1)
  - Alopecia [Unknown]

NARRATIVE: CASE EVENT DATE: 20220630
